FAERS Safety Report 24265418 (Version 1)
Quarter: 2024Q3

REPORT INFORMATION
  Report Type: Spontaneous
  Country: US (occurrence: US)
  Receive Date: 20240829
  Receipt Date: 20240829
  Transmission Date: 20241017
  Serious: No
  Sender: SANOFI AVENTIS
  Company Number: US-SANOFI-02189471

PATIENT

DRUGS (2)
  1. ENJAYMO [Suspect]
     Active Substance: SUTIMLIMAB-JOME
     Indication: Cold type haemolytic anaemia
     Dosage: UNK UNK, QOW
  2. ENJAYMO [Suspect]
     Active Substance: SUTIMLIMAB-JOME
     Dosage: UNK UNK, Q4W

REACTIONS (1)
  - Off label use [Unknown]
